FAERS Safety Report 10093790 (Version 1)
Quarter: 2014Q2

REPORT INFORMATION
  Report Type: Spontaneous
  Country: US (occurrence: US)
  Receive Date: 20140421
  Receipt Date: 20140421
  Transmission Date: 20141212
  Serious: No
  Sender: FDA-Public Use
  Company Number: US-SA-2014SA012747

PATIENT
  Sex: Male

DRUGS (3)
  1. ALLEGRA [Suspect]
  2. TUMS [Concomitant]
  3. PROTONIX [Concomitant]

REACTIONS (3)
  - Somnolence [Unknown]
  - Dizziness [Unknown]
  - Underdose [Unknown]
